FAERS Safety Report 13918864 (Version 1)
Quarter: 2017Q3

REPORT INFORMATION
  Report Type: Spontaneous
  Country: US (occurrence: None)
  Receive Date: 20170828
  Receipt Date: 20170828
  Transmission Date: 20171127
  Serious: Yes (Other)
  Sender: FDA-Public Use
  Company Number: None

PATIENT
  Age: 13 Year
  Sex: Male

DRUGS (12)
  1. PULMOZYME [Concomitant]
     Active Substance: DORNASE ALFA
  2. PROCRIT [Concomitant]
     Active Substance: ERYTHROPOIETIN
  3. F [Concomitant]
  4. I TROPIUM [Concomitant]
  5. KITABIS PAK [Concomitant]
     Active Substance: TOBRAMYCIN
  6. CLARITIN [Concomitant]
     Active Substance: LORATADINE
  7. COMP [Concomitant]
  8. OMEPRAZOLE. [Concomitant]
     Active Substance: OMEPRAZOLE
  9. FLONASE [Concomitant]
     Active Substance: FLUTICASONE PROPIONATE
  10. CLO [Concomitant]
     Active Substance: CLOMIPRAMINE HYDROCHLORIDE
  11. FAMOTIDINE. [Concomitant]
     Active Substance: FAMOTIDINE
  12. CREON [Suspect]
     Active Substance: PANCRELIPASE AMYLASE\PANCRELIPASE LIPASE\PANCRELIPASE PROTEASE
     Indication: CYSTIC FIBROSIS
     Dosage: 24,000 UNITS 4 WITH MEALS, 3 WITH SNACK 23 DAY BRA
     Dates: start: 20170703

REACTIONS (3)
  - Therapy change [None]
  - Abdominal discomfort [None]
  - Drug intolerance [None]
